FAERS Safety Report 16116596 (Version 1)
Quarter: 2019Q1

REPORT INFORMATION
  Report Type: Spontaneous
  Country: GB (occurrence: GB)
  Receive Date: 20190326
  Receipt Date: 20190326
  Transmission Date: 20190418
  Serious: Yes (Hospitalization)
  Sender: FDA-Public Use
  Company Number: GB-ACCORD-115613

PATIENT
  Age: 98 Year
  Sex: Female
  Weight: 50 kg

DRUGS (17)
  1. FUROSEMIDE. [Suspect]
     Active Substance: FUROSEMIDE
     Indication: OEDEMA PERIPHERAL
     Dosage: MORNING,ALSO RECEIVED 20 MG FROM 25-SEP-2018
     Route: 048
     Dates: end: 20180925
  2. DOCUSATE/DOCUSATE CALCIUM/DOCUSATE POTASSIUM/DOCUSATE SODIUM [Concomitant]
  3. OMEPRAZOLE. [Concomitant]
     Active Substance: OMEPRAZOLE
  4. ATORVASTATIN [Concomitant]
     Active Substance: ATORVASTATIN
  5. ADCAL-D3 [Concomitant]
     Active Substance: CALCIUM CARBONATE\CHOLECALCIFEROL
  6. TEMAZEPAM. [Concomitant]
     Active Substance: TEMAZEPAM
  7. FUROSEMIDE. [Suspect]
     Active Substance: FUROSEMIDE
     Indication: OEDEMA PERIPHERAL
     Dosage: MORNING
     Route: 048
     Dates: start: 20180925
  8. DULOXETINE. [Concomitant]
     Active Substance: DULOXETINE
  9. ALENDRONATE SODIUM/ALENDRONIC ACID [Concomitant]
  10. LACTULOSE. [Concomitant]
     Active Substance: LACTULOSE
  11. BISOPROLOL [Concomitant]
     Active Substance: BISOPROLOL
  12. CLENIL MODULITE [Concomitant]
     Active Substance: BECLOMETHASONE DIPROPIONATE
  13. AMITRIPTYLINE [Concomitant]
     Active Substance: AMITRIPTYLINE
  14. ACETYLSALICYLIC ACID [Concomitant]
     Active Substance: ASPIRIN
  15. COCODAMOL [Concomitant]
     Active Substance: ACETAMINOPHEN\CODEINE PHOSPHATE
  16. SALBUTAMOL [Concomitant]
     Active Substance: ALBUTEROL
  17. LEVOTHYROXINE. [Concomitant]
     Active Substance: LEVOTHYROXINE

REACTIONS (7)
  - Orthostatic hypotension [Unknown]
  - Atrial fibrillation [Unknown]
  - Memory impairment [Unknown]
  - Urine output increased [Unknown]
  - Fall [Unknown]
  - Incontinence [Unknown]
  - Urinary tract infection [Unknown]

NARRATIVE: CASE EVENT DATE: 20181122
